FAERS Safety Report 10086707 (Version 1)
Quarter: 2014Q2

REPORT INFORMATION
  Report Type: Spontaneous
  Country: US (occurrence: None)
  Receive Date: 20140417
  Receipt Date: 20140417
  Transmission Date: 20141212
  Serious: Yes (Other)
  Sender: FDA-Public Use
  Company Number: None

PATIENT
  Age: 16 Year
  Sex: Female
  Weight: 51.4 kg

DRUGS (1)
  1. MEDROXYPROGESTERONE ACETATE [Suspect]
     Indication: CONTRACEPTION
     Route: 030
     Dates: start: 20140321

REACTIONS (3)
  - Contusion [None]
  - Paraesthesia [None]
  - Hypoaesthesia [None]
